FAERS Safety Report 10026827 (Version 1)
Quarter: 2014Q1

REPORT INFORMATION
  Report Type: Spontaneous
  Country: LB (occurrence: LB)
  Receive Date: 20140321
  Receipt Date: 20140321
  Transmission Date: 20141002
  Serious: Yes (Other)
  Sender: FDA-Public Use
  Company Number: LB-SA-2014SA035173

PATIENT
  Age: 41 Year
  Sex: Male

DRUGS (4)
  1. ANTI-THYMOCYTE GLOBULIN (RABBIT) [Suspect]
     Indication: IMMUNOSUPPRESSANT DRUG THERAPY
     Route: 065
  2. MYCOPHENOLATE MOFETIL [Suspect]
     Indication: IMMUNOSUPPRESSANT DRUG THERAPY
     Route: 065
  3. TACROLIMUS [Suspect]
     Indication: IMMUNOSUPPRESSANT DRUG THERAPY
     Route: 065
  4. CORTICOSTEROID NOS [Suspect]
     Indication: IMMUNOSUPPRESSANT DRUG THERAPY
     Route: 065

REACTIONS (8)
  - Complications of transplanted kidney [Recovered/Resolved]
  - Computerised tomogram abdomen abnormal [Recovered/Resolved]
  - Renal necrosis [Recovered/Resolved]
  - Graft haemorrhage [Recovered/Resolved]
  - Thrombotic microangiopathy [Recovered/Resolved]
  - Blood creatinine increased [Recovered/Resolved]
  - Urinary tract infection viral [Recovered/Resolved]
  - Pyrexia [Recovered/Resolved]
